FAERS Safety Report 7973567-4 (Version None)
Quarter: 2011Q4

REPORT INFORMATION
  Report Type: 
  Country: None (occurrence: None)
  Receive Date: 20111213
  Receipt Date: 20111205
  Transmission Date: 20120403
  Serious: Yes (Hospitalization, Other)
  Sender: FDA-Public Use
  Company Number: US-SHIRE-ALL1-2011-04775

PATIENT
  Sex: Female
  Weight: 61.224 kg

DRUGS (3)
  1. PREDNISONE TAB [Suspect]
     Indication: COLITIS ULCERATIVE
     Dosage: 20 MG, 1X/DAY:QD(TWO 10 MGTABLETS DAILY)
     Route: 048
     Dates: start: 20080101
  2. REMICADE [Suspect]
     Indication: COLITIS ULCERATIVE
     Dosage: 6 MG,( EVERY 8 WEEKS)
     Route: 041
     Dates: start: 20100101
  3. LIALDA [Suspect]
     Indication: COLITIS ULCERATIVE
     Dosage: 2.4 G, 1X/DAY:QD(TWO 1.2 G TABLETS DAILY)
     Route: 048
     Dates: start: 20101101

REACTIONS (5)
  - DRUG INTERACTION [None]
  - CONVULSION [None]
  - DRUG INEFFECTIVE [None]
  - PNEUMONIA [None]
  - WEIGHT INCREASED [None]
